FAERS Safety Report 5073041-1 (Version None)
Quarter: 2006Q3

REPORT INFORMATION
  Report Type: 
  Country: None (occurrence: None)
  Receive Date: 20060802
  Receipt Date: 20060721
  Transmission Date: 20061208
  Serious: No
  Sender: FDA-Public Use
  Company Number: 2006JP001852

PATIENT
  Age: 42 Year
  Sex: Male
  Weight: 85 kg

DRUGS (8)
  1. TACROLIMUS (TACROLIMUS) FORMULATION UNKNOWN [Suspect]
     Indication: HEART TRANSPLANT
     Dosage: 1 MG, BID; ORAL
     Route: 048
     Dates: start: 20030901, end: 20050601
  2. METHYLPREDNISOLONE [Concomitant]
  3. PREDNISONE (PREDNISONE ACETATE) FORMULATION UNKNOWN [Concomitant]
  4. AZATHIOPRINE [Concomitant]
  5. CYCLOSPORINE FORMULATION UNKNOWN [Concomitant]
  6. METHYLPREDNISOLONE [Concomitant]
  7. SIROLIMUS (SIROLIMUS) INJECTION [Concomitant]
  8. MYCOPHENOLATE MOFETIL (MYCOPHENOLATE MOFETIL) FORMULATION UNKNOWN [Concomitant]

REACTIONS (3)
  - KAPOSI'S SARCOMA [None]
  - LYMPHADENOPATHY [None]
  - MALIGNANT NEOPLASM PROGRESSION [None]
